FAERS Safety Report 8115884-3 (Version None)
Quarter: 2012Q1

REPORT INFORMATION
  Report Type: 
  Country: None (occurrence: None)
  Receive Date: 20120206
  Receipt Date: 20120127
  Transmission Date: 20120608
  Serious: Yes (Death, Hospitalization)
  Sender: FDA-Public Use
  Company Number: US-BRISTOL-MYERS SQUIBB COMPANY-16230005

PATIENT
  Age: 59 Year
  Sex: Male
  Weight: 71 kg

DRUGS (8)
  1. CISPLATIN [Suspect]
     Indication: NON-SMALL CELL LUNG CANCER
     Dosage: LAST DOSE:17OCT11=85D (137MG) NO OF DOSE:5
     Route: 042
     Dates: start: 20110725
  2. ONDANSETRON HCL [Concomitant]
  3. LOVENOX [Concomitant]
     Dates: end: 20111101
  4. PHENERGAN [Concomitant]
  5. ERBITUX [Suspect]
     Indication: NON-SMALL CELL LUNG CANCER
     Dosage: LAST DOSE:24OCT11(487MG) NO OF DOSE:14.INTRP ON1NOV11 INTER ON 31OCT11.25JUL11-24OCT11(92D)
     Route: 042
     Dates: start: 20110725
  6. GEMCITABINE HYDROCHLORIDE [Suspect]
     Indication: NON-SMALL CELL LUNG CANCER
     Dosage: LAST DOSE:24OCT11=92D (1830MG) NO OF DOSE:10
     Route: 042
     Dates: start: 20110725
  7. ALBUTEROL [Concomitant]
  8. JEVITY [Concomitant]

REACTIONS (6)
  - HYPOTENSION [None]
  - DEHYDRATION [None]
  - HYPOMAGNESAEMIA [None]
  - HAEMOGLOBIN DECREASED [None]
  - THROMBOCYTOPENIA [None]
  - NEUTROPENIA [None]
